FAERS Safety Report 9278013 (Version 1)
Quarter: 2013Q2

REPORT INFORMATION
  Report Type: Spontaneous
  Country: US (occurrence: US)
  Receive Date: 20130508
  Receipt Date: 20130508
  Transmission Date: 20140414
  Serious: Yes (Other)
  Sender: FDA-Public Use
  Company Number: US-PFIZER INC-2013140810

PATIENT
  Age: 54 Year
  Sex: Female
  Weight: 112 kg

DRUGS (6)
  1. CELEBREX [Suspect]
     Indication: OSTEOARTHRITIS
     Dosage: 200 MG, 2X/DAY
     Route: 048
  2. CELEBREX [Suspect]
     Indication: ARTHRALGIA
  3. CELEBREX [Suspect]
     Indication: ARTHRITIS
  4. METFORMIN [Concomitant]
     Indication: DIABETES MELLITUS
     Dosage: 1000 MG, 2X/DAY
  5. LISINOPRIL [Concomitant]
     Indication: HYPERTENSION
     Dosage: 40 MG, 1X/DAY
  6. LORTAB [Concomitant]
     Dosage: 75 MG, 3X/DAY

REACTIONS (6)
  - Accident [Unknown]
  - Multiple fractures [Unknown]
  - Rib fracture [Unknown]
  - Intentional drug misuse [Unknown]
  - Musculoskeletal stiffness [Unknown]
  - Bone disorder [Unknown]
